FAERS Safety Report 8875978 (Version 2)
Quarter: 2012Q4

REPORT INFORMATION
  Report Type: 
  Country: US (occurrence: US)
  Receive Date: 20121023
  Receipt Date: 20121220
  Transmission Date: 20130627
  Serious: No
  Sender: FDA-Public Use
  Company Number: US-PFIZER INC-2012261448

PATIENT
  Age: 43 Year
  Sex: Female
  Weight: 59 kg

DRUGS (7)
  1. LYRICA [Suspect]
     Indication: FIBROMYALGIA
     Dosage: 150 mg, 2x/day
     Route: 048
     Dates: start: 20121003
  2. GABAPENTIN [Suspect]
     Dosage: UNK
  3. NAPROXEN [Concomitant]
     Dosage: UNK, 2x/day
  4. LORATADINE [Concomitant]
     Indication: ALLERGY
     Dosage: UNK
  5. PANTOPRAZOLE [Concomitant]
     Dosage: UNK
  6. FLUTICASONE [Concomitant]
     Indication: ALLERGY
     Dosage: UNK
  7. QVAR [Concomitant]
     Indication: ASTHMA
     Dosage: UNK, 2x/day

REACTIONS (3)
  - Dizziness [Not Recovered/Not Resolved]
  - Feeling abnormal [Not Recovered/Not Resolved]
  - Pain [Unknown]
